FAERS Safety Report 21384117 (Version 1)
Quarter: 2022Q3

REPORT INFORMATION
  Report Type: Spontaneous
  Country: CA (occurrence: CA)
  Receive Date: 20220928
  Receipt Date: 20220928
  Transmission Date: 20221027
  Serious: Yes (Other)
  Sender: FDA-Public Use
  Company Number: CA-BRISTOL-MYERS SQUIBB COMPANY-2022-052617

PATIENT
  Age: 33 Year

DRUGS (2)
  1. NIVOLUMAB [Suspect]
     Active Substance: NIVOLUMAB
     Indication: Renal cell carcinoma
     Route: 065
  2. HEPARIN [Concomitant]
     Active Substance: HEPARIN SODIUM
     Indication: Prophylaxis
     Route: 065

REACTIONS (6)
  - Dry mouth [Unknown]
  - Maternal exposure during pregnancy [Recovered/Resolved]
  - Gingival pain [Unknown]
  - Loose tooth [Unknown]
  - Live birth [Unknown]
  - Arrested labour [Unknown]
